FAERS Safety Report 8270326-2 (Version None)
Quarter: 2012Q2

REPORT INFORMATION
  Report Type: 
  Country: None (occurrence: None)
  Receive Date: 20120410
  Receipt Date: 20120404
  Transmission Date: 20120825
  Serious: Yes (Life-Threatening, Hospitalization, Other)
  Sender: FDA-Public Use
  Company Number: US-JNJFOC-20120214567

PATIENT
  Sex: Female
  Weight: 68.04 kg

DRUGS (2)
  1. XARELTO [Suspect]
     Indication: DEEP VEIN THROMBOSIS
     Route: 048
     Dates: start: 20120214, end: 20120223
  2. CO-Q10 [Concomitant]

REACTIONS (3)
  - ADRENAL HAEMORRHAGE [None]
  - PULMONARY EMBOLISM [None]
  - THROMBOCYTOPENIA [None]
